FAERS Safety Report 5069656-7 (Version None)
Quarter: 2006Q3

REPORT INFORMATION
  Report Type: 
  Country: None (occurrence: None)
  Receive Date: 20060714
  Receipt Date: 20060404
  Transmission Date: 20061208
  Serious: No
  Sender: FDA-Public Use
  Company Number: 2006SP001566

PATIENT
  Age: 48 Year
  Sex: Male

DRUGS (1)
  1. LUNESTA [Suspect]
     Indication: INITIAL INSOMNIA
     Dosage: 3 MG;ORAL
     Route: 048

REACTIONS (2)
  - DYSGEUSIA [None]
  - INITIAL INSOMNIA [None]
